FAERS Safety Report 9631536 (Version 1)
Quarter: 2013Q4

REPORT INFORMATION
  Report Type: Spontaneous
  Country: US (occurrence: None)
  Receive Date: 20131003
  Receipt Date: 20131003
  Transmission Date: 20140711
  Serious: Yes (Other)
  Sender: FDA-Public Use
  Company Number: 2013038200

PATIENT
  Sex: Female

DRUGS (1)
  1. RHOPHYLAC [Suspect]
     Indication: IMMUNISATION
     Dosage: 300 UG, 300 M.C.G (ML/MIN); 1 UNIT
     Route: 023

REACTIONS (1)
  - Incorrect route of drug administration [None]
